FAERS Safety Report 9781485 (Version 1)
Quarter: 2013Q4

REPORT INFORMATION
  Report Type: Spontaneous
  Country: US (occurrence: US)
  Receive Date: 20131224
  Receipt Date: 20131224
  Transmission Date: 20140711
  Serious: No
  Sender: FDA-Public Use
  Company Number: US-BIOGENIDEC-2013BI121661

PATIENT
  Age: 39 Year
  Sex: Female

DRUGS (3)
  1. TECFIDERA [Suspect]
     Indication: MULTIPLE SCLEROSIS
     Route: 048
     Dates: start: 201312
  2. PROVIGIL [Concomitant]
  3. PERCOCET [Concomitant]

REACTIONS (6)
  - Pain [Unknown]
  - Arthralgia [Unknown]
  - Headache [Unknown]
  - Anaemia [Unknown]
  - Abdominal discomfort [Unknown]
  - Abdominal pain [Unknown]
